FAERS Safety Report 20003008 (Version 1)
Quarter: 2021Q4

REPORT INFORMATION
  Report Type: Spontaneous
  Country: US (occurrence: US)
  Receive Date: 20211027
  Receipt Date: 20211027
  Transmission Date: 20220304
  Serious: No
  Sender: FDA-Public Use
  Company Number: US-SA-SAC20211021000908

PATIENT
  Sex: Female

DRUGS (2)
  1. DUPIXENT [Suspect]
     Active Substance: DUPILUMAB
     Indication: Illness
     Dosage: 300MG/2ML, EVERY OTHER WEEK
     Route: 058
     Dates: start: 20210901
  2. DUPIXENT [Suspect]
     Active Substance: DUPILUMAB
     Indication: Asthma

REACTIONS (5)
  - Swelling of eyelid [Unknown]
  - Malaise [Unknown]
  - Mental status changes [Unknown]
  - Dry eye [Unknown]
  - Product use in unapproved indication [Unknown]
